FAERS Safety Report 12716882 (Version 1)
Quarter: 2016Q3

REPORT INFORMATION
  Report Type: Spontaneous
  Country: FR (occurrence: FR)
  Receive Date: 20160906
  Receipt Date: 20160906
  Transmission Date: 20161109
  Serious: Yes (Hospitalization, Other)
  Sender: FDA-Public Use
  Company Number: FR-PFIZER INC-2016413635

PATIENT
  Age: 32 Year
  Sex: Male

DRUGS (14)
  1. AUGMENTIN [Concomitant]
     Active Substance: AMOXICILLIN\CLAVULANATE POTASSIUM
     Dosage: 1 G, 3X/DAY
     Dates: start: 20160725, end: 20160726
  2. CORDARONE [Suspect]
     Active Substance: AMIODARONE HYDROCHLORIDE
     Indication: ATRIAL FIBRILLATION
     Dosage: 1200 MG, DAILY
     Route: 065
     Dates: start: 20160722
  3. CORDARONE [Suspect]
     Active Substance: AMIODARONE HYDROCHLORIDE
     Dosage: 4 DF, DAILY
     Dates: start: 20160724, end: 20160725
  4. ACUPAN [Concomitant]
     Active Substance: NEFOPAM HYDROCHLORIDE
     Dosage: 40 MG, 3X/DAY
     Dates: start: 20160719
  5. OXYNORM [Concomitant]
     Active Substance: OXYCODONE HYDROCHLORIDE
     Dosage: UNK
     Dates: start: 20160724, end: 20160726
  6. CORDARONE [Suspect]
     Active Substance: AMIODARONE HYDROCHLORIDE
     Indication: ATRIAL FIBRILLATION
     Dosage: 150 MG, 2X/DAY
     Route: 042
     Dates: start: 20160722, end: 20160722
  7. PARACETAMOL [Concomitant]
     Active Substance: ACETAMINOPHEN
     Dosage: 1 G, 4X/DAY
     Dates: start: 20160719, end: 20160726
  8. TAZOCILLINE [Concomitant]
     Active Substance: PIPERACILLIN SODIUM\TAZOBACTAM SODIUM
     Dosage: 4 G, 4X/DAY
     Dates: start: 20160722, end: 20160725
  9. POLYSORBATE 80. [Suspect]
     Active Substance: POLYSORBATE 80
     Dosage: UNK
     Route: 042
     Dates: start: 20160722, end: 20160722
  10. LANSOPRAZOLE. [Concomitant]
     Active Substance: LANSOPRAZOLE
     Dosage: UNK
     Dates: start: 20160719, end: 20160723
  11. CORDARONE [Suspect]
     Active Substance: AMIODARONE HYDROCHLORIDE
     Dosage: 600 MG, UNK (ONCE)
  12. CORDARONE [Concomitant]
     Active Substance: AMIODARONE HYDROCHLORIDE
     Dosage: UNK
     Dates: start: 20160722, end: 20160726
  13. CORDARONE [Suspect]
     Active Substance: AMIODARONE HYDROCHLORIDE
     Dosage: UNK
     Route: 042
     Dates: start: 20160724, end: 20160724
  14. MIOREL [Concomitant]
     Active Substance: THIOCOLCHICOSIDE
     Dosage: 8 MG, 2X/DAY
     Dates: start: 20160724, end: 20160726

REACTIONS (3)
  - Transaminases increased [Recovering/Resolving]
  - Coagulation time prolonged [Recovering/Resolving]
  - Hepatitis [Recovering/Resolving]

NARRATIVE: CASE EVENT DATE: 20160726
